FAERS Safety Report 9291589 (Version 1)
Quarter: 2013Q2

REPORT INFORMATION
  Report Type: Report from Study
  Country: HU (occurrence: HU)
  Receive Date: 20130515
  Receipt Date: 20130515
  Transmission Date: 20140414
  Serious: Yes (Other)
  Sender: FDA-Public Use
  Company Number: HU-GLAXOSMITHKLINE-B0891221A

PATIENT
  Sex: Female

DRUGS (4)
  1. SERETIDE (50MCG/250MCG) [Suspect]
     Indication: CHRONIC OBSTRUCTIVE PULMONARY DISEASE
     Dosage: 500MG TWICE PER DAY
     Route: 055
     Dates: start: 201211, end: 201303
  2. TORVALIPIN [Concomitant]
     Indication: HYPERCHOLESTEROLAEMIA
     Dosage: 20MG PER DAY
     Route: 065
  3. BISOPROLOL [Concomitant]
     Indication: HYPERTENSION
     Dosage: 5MG PER DAY
     Route: 065
  4. VALSARTAN [Concomitant]
     Dosage: 25MG PER DAY
     Route: 065

REACTIONS (3)
  - Haemorrhoidal haemorrhage [Recovered/Resolved]
  - Diaphragmalgia [Recovered/Resolved]
  - Cough [Recovered/Resolved]
